FAERS Safety Report 5636668-1 (Version None)
Quarter: 2008Q1

REPORT INFORMATION
  Report Type: 
  Country: None (occurrence: None)
  Receive Date: 20080225
  Receipt Date: 20080211
  Transmission Date: 20080703
  Serious: Yes (Other)
  Sender: FDA-Public Use
  Company Number: US-ROCHE-546720

PATIENT
  Age: 47 Year
  Sex: Female
  Weight: 65.8 kg

DRUGS (2)
  1. BONIVA [Suspect]
     Indication: OSTEOPOROSIS
     Route: 048
     Dates: start: 20050101, end: 20071215
  2. AROMASIN [Concomitant]
     Indication: BREAST CANCER

REACTIONS (1)
  - JAW CYST [None]
